FAERS Safety Report 21340890 (Version 1)
Quarter: 2022Q3

REPORT INFORMATION
  Report Type: Spontaneous
  Country: PK (occurrence: PK)
  Receive Date: 20220916
  Receipt Date: 20220916
  Transmission Date: 20221027
  Serious: Yes (Other)
  Sender: FDA-Public Use
  Company Number: PK-PFIZER INC-2021201057

PATIENT
  Age: 42 Year
  Sex: Female

DRUGS (11)
  1. ENBREL [Suspect]
     Active Substance: ETANERCEPT
     Indication: Rheumatoid arthritis
     Dosage: 50 MILLIGRAM, QWK
     Route: 058
  2. ENBREL [Suspect]
     Active Substance: ETANERCEPT
     Dosage: 50 MILLIGRAM, QMO
     Route: 058
  3. DELTACORTRIL [Concomitant]
     Active Substance: PREDNISOLONE
     Dosage: 5 DOSAGE FORM, 2 X 5 TABS
  4. FOLIC ACID [Concomitant]
     Active Substance: FOLIC ACID
     Dosage: 5 MILLIGRAM, QD
  5. NEORAL [Concomitant]
     Active Substance: CYCLOSPORINE
     Dosage: 25 MILLIGRAM, QD
  6. CELBEXX [Concomitant]
     Indication: Pain
     Dosage: 200 MILLIGRAM, BID
  7. SAMEROL-N [Concomitant]
     Indication: Pain
     Dosage: UNK, BID
  8. RISEK [OMEPRAZOLE] [Concomitant]
     Dosage: 20 MILLIGRAM, QD
  9. MONTELUKAST SODIUM [Concomitant]
     Active Substance: MONTELUKAST SODIUM
     Dosage: 1 DOSAGE FORM
  10. FEXOFENADINE [Concomitant]
     Active Substance: FEXOFENADINE HYDROCHLORIDE
     Dosage: 1 DOSAGE FORM, BID
  11. CALTRATE +D [CALCIUM;COLECALCIFEROL] [Concomitant]
     Dosage: UNK, BID

REACTIONS (5)
  - Lethargy [Unknown]
  - Myalgia [Unknown]
  - Off label use [Unknown]
  - Fatigue [Unknown]
  - Angioedema [Unknown]
